FAERS Safety Report 21407086 (Version 1)
Quarter: 2022Q4

REPORT INFORMATION
  Report Type: Spontaneous
  Country: DK (occurrence: DK)
  Receive Date: 20221004
  Receipt Date: 20221004
  Transmission Date: 20230113
  Serious: Yes (Other)
  Sender: FDA-Public Use
  Company Number: None

PATIENT
  Age: 59 Year
  Sex: Male

DRUGS (2)
  1. FRAGMIN [Suspect]
     Active Substance: DALTEPARIN SODIUM
     Indication: Hypoalbuminaemia
     Dosage: DOSAGE: UNKNOWN. PAUSED 30JUN2020-01JUL2020
     Dates: start: 20200626, end: 20200629
  2. FRAGMIN [Suspect]
     Active Substance: DALTEPARIN SODIUM
     Dosage: DOSAGE: UNKNOWN. PAUSED 30JUN2020-01JUL2020
     Dates: start: 20200702, end: 20200710

REACTIONS (7)
  - Fall [Recovered/Resolved]
  - Haematoma muscle [Recovered/Resolved]
  - Peroneal nerve palsy [Recovered/Resolved]
  - Flank pain [Unknown]
  - Musculoskeletal pain [Unknown]
  - Pain in extremity [Unknown]
  - Arthralgia [Unknown]

NARRATIVE: CASE EVENT DATE: 20200710
